FAERS Safety Report 23105980 (Version 1)
Quarter: 2023Q4

REPORT INFORMATION
  Report Type: Report from Study
  Country: CN (occurrence: CN)
  Receive Date: 20231025
  Receipt Date: 20231025
  Transmission Date: 20240109
  Serious: Yes (Hospitalization)
  Sender: FDA-Public Use
  Company Number: CN-Eisai Medical Research-EC-2021-102277

PATIENT
  Age: 70 Year
  Sex: Male
  Weight: 55.5 kg

DRUGS (8)
  1. LENVATINIB [Suspect]
     Active Substance: LENVATINIB
     Indication: Hepatocellular carcinoma
     Route: 048
     Dates: start: 20210702, end: 20210901
  2. LENVATINIB [Suspect]
     Active Substance: LENVATINIB
     Dosage: STARTING DOSE AT 8MG, FLUCTUATED DOSAGE
     Route: 048
     Dates: start: 20210901, end: 20220522
  3. PEMBROLIZUMAB [Suspect]
     Active Substance: PEMBROLIZUMAB
     Indication: Hepatocellular carcinoma
     Route: 041
     Dates: start: 20210702, end: 20210812
  4. PEMBROLIZUMAB [Suspect]
     Active Substance: PEMBROLIZUMAB
     Route: 041
     Dates: start: 20210923, end: 20220419
  5. EPIRUBICIN [Suspect]
     Active Substance: EPIRUBICIN
     Indication: Hepatocellular carcinoma
     Dosage: UNKNOWN DOSE
     Dates: start: 2021, end: 20211108
  6. ENTECAVIR [Concomitant]
     Active Substance: ENTECAVIR
     Dates: start: 20200726
  7. FELODIPINE [Concomitant]
     Active Substance: FELODIPINE
     Dates: start: 202104, end: 20210811
  8. FELODIPINE [Concomitant]
     Active Substance: FELODIPINE
     Dates: start: 202104, end: 20210811

REACTIONS (1)
  - Platelet count decreased [Recovered/Resolved]

NARRATIVE: CASE EVENT DATE: 20210812
